FAERS Safety Report 23980062 (Version 1)
Quarter: 2024Q2

REPORT INFORMATION
  Report Type: Report from Study
  Country: KR (occurrence: KR)
  Receive Date: 20240617
  Receipt Date: 20240617
  Transmission Date: 20240716
  Serious: Yes (Life-Threatening, Hospitalization)
  Sender: FDA-Public Use
  Company Number: KR-BAXTER-2024BAX019589

PATIENT
  Age: 23 Year
  Sex: Female
  Weight: 45.4 kg

DRUGS (21)
  1. CYCLOPHOSPHAMIDE [Suspect]
     Active Substance: CYCLOPHOSPHAMIDE
     Indication: Chemotherapy
     Dosage: UNK, (INFUSION) AS A PART OF R-CHOP
     Route: 065
     Dates: start: 20220104
  2. CYCLOPHOSPHAMIDE [Suspect]
     Active Substance: CYCLOPHOSPHAMIDE
     Dosage: UNK, (INFUSION) AS A PART OF R-CHOP, PRIOR TO EVENT ONSET
     Route: 065
     Dates: start: 20220419, end: 20220419
  3. DOXORUBICIN [Suspect]
     Active Substance: DOXORUBICIN
     Indication: Chemotherapy
     Dosage: UNK, (INTRAVENOUS) AS A PART OF R-CHOP
     Route: 065
     Dates: start: 20220104
  4. DOXORUBICIN [Suspect]
     Active Substance: DOXORUBICIN
     Dosage: UNK, (INTRAVENOUS) AS A PART OF R-CHOP, PRIOR TO EVENT ONSET
     Route: 065
     Dates: start: 20220419, end: 20220419
  5. MESNA [Suspect]
     Active Substance: MESNA
     Indication: Prophylaxis
     Dosage: 400 MG
     Route: 042
     Dates: start: 20220419, end: 20220419
  6. MESNA [Suspect]
     Active Substance: MESNA
     Indication: Chemotherapy
  7. RITUXIMAB [Suspect]
     Active Substance: RITUXIMAB
     Indication: Chemotherapy
     Dosage: UNK, AS A PART OF R-CHOP
     Route: 065
     Dates: start: 20220104
  8. RITUXIMAB [Suspect]
     Active Substance: RITUXIMAB
     Dosage: UNK, AS A PART OF R-CHOP, PRIOR TO EVENT ONSET
     Route: 065
     Dates: start: 20220419, end: 20220419
  9. VINCRISTINE [Suspect]
     Active Substance: VINCRISTINE
     Indication: Chemotherapy
     Dosage: UNK, (INTRAVENOUS) AS A PART OF R-CHOP
     Route: 065
     Dates: start: 20220104
  10. VINCRISTINE [Suspect]
     Active Substance: VINCRISTINE
     Dosage: UNK, (INTRAVENOUS) AS A PART OF R-CHOP, PRIOR TO EVENT ONSET
     Route: 065
     Dates: start: 20220419, end: 20220419
  11. PREDNISONE [Suspect]
     Active Substance: PREDNISONE
     Indication: Chemotherapy
     Dosage: UNK, (INTRAVENOUS, MILLIGRAM/SQ. METER) AS A PART OF R-CHOP
     Route: 065
     Dates: start: 20220104
  12. PREDNISONE [Suspect]
     Active Substance: PREDNISONE
     Dosage: UNK, (INTRAVENOUS, MILLIGRAM/SQ. METER) AS A PART OF R-CHOP, PRIOR TO EVENT ONSET
     Route: 065
     Dates: start: 20220419, end: 20220419
  13. AKYNZEO [Concomitant]
     Indication: Antiemetic supportive care
     Dosage: 300 MG DAILY DOSE
     Route: 048
     Dates: start: 20220419, end: 20220419
  14. LEVOFLOXACIN [Concomitant]
     Active Substance: LEVOFLOXACIN
     Indication: Infection prophylaxis
     Dosage: 500 MG DAILY DOSE, ONGOING
     Route: 048
     Dates: start: 20220109
  15. RABIET [Concomitant]
     Indication: Gastrooesophageal reflux disease
     Dosage: 10 MG DAILY DOSE, ONGOING
     Route: 048
     Dates: start: 20220118
  16. Zoylex [Concomitant]
     Indication: Infection prophylaxis
     Dosage: 400 MG DAILY DOSE, ONGOING
     Route: 048
     Dates: start: 20220104
  17. Diflex [Concomitant]
     Indication: Infection prophylaxis
     Dosage: 50 MG DAILY DOSE, ONGOING
     Route: 048
     Dates: start: 20220109
  18. ACETAMINOPHEN [Concomitant]
     Active Substance: ACETAMINOPHEN
     Indication: Prophylaxis
     Dosage: 650 MG DAILY DOSE
     Route: 048
     Dates: start: 20220419, end: 20220419
  19. ACETAMINOPHEN [Concomitant]
     Active Substance: ACETAMINOPHEN
     Indication: Chemotherapy
  20. PENIRAMIN [Concomitant]
     Indication: Prophylaxis
     Dosage: 4 MG DAILY DOSE
     Route: 042
     Dates: start: 20220419, end: 20220419
  21. PENIRAMIN [Concomitant]
     Indication: Chemotherapy

REACTIONS (1)
  - Febrile neutropenia [Recovered/Resolved]

NARRATIVE: CASE EVENT DATE: 20220427
